FAERS Safety Report 12954794 (Version 1)
Quarter: 2016Q4

REPORT INFORMATION
  Report Type: Spontaneous
  Country: US (occurrence: US)
  Receive Date: 20161117
  Receipt Date: 20161117
  Transmission Date: 20170207
  Serious: No
  Sender: FDA-Public Use
  Company Number: None

PATIENT
  Age: 27 Year
  Sex: Female
  Weight: 70.2 kg

DRUGS (2)
  1. ICY HOT MEDICATED [Suspect]
     Active Substance: MENTHOL
     Indication: BACK PAIN
     Route: 061
  2. WP THYROID [Concomitant]

REACTIONS (2)
  - Application site burn [None]
  - Burns second degree [None]

NARRATIVE: CASE EVENT DATE: 20161115
